FAERS Safety Report 6904543-8 (Version None)
Quarter: 2010Q3

REPORT INFORMATION
  Report Type: 
  Country: None (occurrence: None)
  Receive Date: 20100804
  Receipt Date: 20090609
  Transmission Date: 20110219
  Serious: Yes (Other)
  Sender: FDA-Public Use
  Company Number: US-PFIZER INC-2009207704

PATIENT
  Sex: Female
  Weight: 70.295 kg

DRUGS (4)
  1. LYRICA [Suspect]
     Indication: FIBROMYALGIA
     Dosage: 50 MG, 1X/DAY
     Dates: start: 20080404
  2. TOPROL-XL [Concomitant]
     Dosage: UNK
  3. VALSARTAN [Concomitant]
     Dosage: UNK
  4. ULTRAM [Concomitant]
     Dosage: UNK

REACTIONS (4)
  - GAIT DISTURBANCE [None]
  - HYPERHIDROSIS [None]
  - MUSCLE SPASMS [None]
  - WEIGHT INCREASED [None]
